FAERS Safety Report 16809765 (Version 1)
Quarter: 2019Q3

REPORT INFORMATION
  Report Type: Spontaneous
  Country: US (occurrence: US)
  Receive Date: 20190916
  Receipt Date: 20190916
  Transmission Date: 20191005
  Serious: No
  Sender: FDA-Public Use
  Company Number: US-AMGEN-USASP2019144856

PATIENT
  Age: 58 Year
  Sex: Female

DRUGS (2)
  1. LOSARTAN. [Concomitant]
     Active Substance: LOSARTAN
     Indication: HYPERTENSION
     Dosage: UNK
  2. REPATHA [Suspect]
     Active Substance: EVOLOCUMAB
     Indication: BLOOD CHOLESTEROL ABNORMAL
     Dosage: 140 MILLIGRAM, Q2WK
     Route: 065
     Dates: start: 2019, end: 2019

REACTIONS (13)
  - Peripheral swelling [Unknown]
  - Feeling abnormal [Unknown]
  - Influenza like illness [Unknown]
  - Pain [Unknown]
  - Muscle spasms [Unknown]
  - Chest pain [Unknown]
  - Dizziness [Unknown]
  - Confusional state [Unknown]
  - Joint swelling [Unknown]
  - Headache [Unknown]
  - Injection site erythema [Recovered/Resolved]
  - Pruritus [Unknown]
  - Injection site swelling [Recovered/Resolved]

NARRATIVE: CASE EVENT DATE: 2019
